FAERS Safety Report 5873104-4 (Version None)
Quarter: 2008Q3

REPORT INFORMATION
  Report Type: 
  Country: None (occurrence: None)
  Receive Date: 20080902
  Receipt Date: 20080820
  Transmission Date: 20090109
  Serious: Yes (Death, Hospitalization)
  Sender: FDA-Public Use
  Company Number: GXKR2008TW07885

PATIENT
  Age: 59 Year
  Sex: Female

DRUGS (3)
  1. AMANTADINE HCL [Suspect]
     Indication: TREMOR
     Dosage: 100 MG, BID; 100 MG, QD
  2. PRAMAIPEXOLE (PRAMAIPEXOLE) [Suspect]
     Indication: TREMOR
     Dosage: 0.125 MG, TID, 0.25 MG
  3. PROPRANOLOL [Concomitant]

REACTIONS (21)
  - AREFLEXIA [None]
  - ARRHYTHMIA [None]
  - BLOOD CREATININE INCREASED [None]
  - BLOOD PRESSURE INCREASED [None]
  - CEREBELLAR ATAXIA [None]
  - CEREBELLAR SYNDROME [None]
  - COGNITIVE DISORDER [None]
  - CONFUSIONAL STATE [None]
  - DYSSTASIA [None]
  - GAIT DISTURBANCE [None]
  - GAZE PALSY [None]
  - HAEMOGLOBIN DECREASED [None]
  - INSOMNIA [None]
  - INTENTION TREMOR [None]
  - IRRITABILITY [None]
  - METABOLIC ENCEPHALOPATHY [None]
  - MYOCLONUS [None]
  - POISONING [None]
  - POTENTIATING DRUG INTERACTION [None]
  - SUDDEN DEATH [None]
  - TOXIC ENCEPHALOPATHY [None]
